FAERS Safety Report 14674233 (Version 1)
Quarter: 2018Q1

REPORT INFORMATION
  Report Type: Spontaneous
  Country: US (occurrence: US)
  Receive Date: 20180323
  Receipt Date: 20180323
  Transmission Date: 20180509
  Serious: Yes (Hospitalization)
  Sender: FDA-Public Use
  Company Number: US-FRESENIUS MEDICAL CARE RENAL THERAPIES GROUP-FMC-1803-000554

PATIENT
  Age: 47 Year
  Sex: Male
  Weight: 89.6 kg

DRUGS (15)
  1. SEVELAMER [Concomitant]
     Active Substance: SEVELAMER
     Dosage: 4 TABLETS T.I.D WITH MEALS
     Route: 048
  2. CLONIDINE. [Concomitant]
     Active Substance: CLONIDINE
  3. ROPINIROLE. [Concomitant]
     Active Substance: ROPINIROLE
  4. HUMALOG [Concomitant]
     Active Substance: INSULIN LISPRO
  5. OXYCODONE [Concomitant]
     Active Substance: OXYCODONE
     Dosage: Q4 HOURS PRN
  6. LABETALOL [Concomitant]
     Active Substance: LABETALOL\LABETALOL HYDROCHLORIDE
  7. GABAPENTIN. [Concomitant]
     Active Substance: GABAPENTIN
     Dosage: T.I.D
  8. TRADJENTA [Concomitant]
     Active Substance: LINAGLIPTIN
  9. HYDRALAZINE [Concomitant]
     Active Substance: HYDRALAZINE HYDROCHLORIDE
     Dosage: PRN
  10. SENSIPAR [Concomitant]
     Active Substance: CINACALCET HYDROCHLORIDE
     Dosage: 50 MG ON WED, 15 MG ON SUN
  11. LISINOPRIL. [Concomitant]
     Active Substance: LISINOPRIL
  12. AUGMENTIN [Concomitant]
     Active Substance: AMOXICILLIN\CLAVULANATE POTASSIUM
     Dosage: 500/125 MG TID
  13. DELFLEX [Suspect]
     Active Substance: CALCIUM CHLORIDE\DEXTROSE\MAGNESIUM CHLORIDE\SODIUM CHLORIDE\SODIUM LACTATE
     Indication: END STAGE RENAL DISEASE
     Route: 033
  14. ERGOCALCIFEROL. [Concomitant]
     Active Substance: ERGOCALCIFEROL
     Dosage: 50,000 IU WEEKLY ON SUNDAY
  15. CALCITRIOL. [Concomitant]
     Active Substance: CALCITRIOL
     Dosage: MONDAY AND THURSDAY

REACTIONS (1)
  - Peritonitis bacterial [Recovering/Resolving]

NARRATIVE: CASE EVENT DATE: 20180317
